FAERS Safety Report 11797164 (Version 1)
Quarter: 2015Q4

REPORT INFORMATION
  Report Type: Spontaneous
  Country: US (occurrence: US)
  Receive Date: 20151203
  Receipt Date: 20151203
  Transmission Date: 20160305
  Serious: No
  Sender: FDA-Public Use
  Company Number: US-GLAXOSMITHKLINE-US2015171699

PATIENT
  Age: 81 Year
  Sex: Female

DRUGS (1)
  1. ABREVA [Suspect]
     Active Substance: DOCOSANOL
     Indication: ORAL HERPES
     Dosage: UNK
     Dates: start: 201511

REACTIONS (6)
  - Condition aggravated [Unknown]
  - Paraesthesia oral [Recovered/Resolved]
  - Application site scab [Recovered/Resolved]
  - Inappropriate schedule of drug administration [Unknown]
  - Glossodynia [Recovered/Resolved]
  - Oral herpes [Recovered/Resolved]
